FAERS Safety Report 16655986 (Version 3)
Quarter: 2019Q3

REPORT INFORMATION
  Report Type: Report from Study
  Country: US (occurrence: US)
  Receive Date: 20190801
  Receipt Date: 20190823
  Transmission Date: 20191004
  Serious: Yes (Hospitalization, Other)
  Sender: FDA-Public Use
  Company Number: US-GILEAD-2019-0417421

PATIENT
  Age: 47 Year
  Sex: Female
  Weight: 163.4 kg

DRUGS (30)
  1. LEVOTHYROXIN [Concomitant]
     Active Substance: LEVOTHYROXINE
  2. SILDENAFIL. [Concomitant]
     Active Substance: SILDENAFIL
  3. TIZANIDINE. [Concomitant]
     Active Substance: TIZANIDINE
  4. PREDNISONE. [Concomitant]
     Active Substance: PREDNISONE
  5. AMBRISENTAN [Suspect]
     Active Substance: AMBRISENTAN
     Indication: PULMONARY ARTERIAL HYPERTENSION
     Dosage: 5 MG, QD
     Route: 065
     Dates: start: 20190610
  6. FLUTICASONE. [Concomitant]
     Active Substance: FLUTICASONE
  7. OXCARBAZEPIN [Concomitant]
     Active Substance: OXCARBAZEPINE
  8. QUETIAPINE. [Concomitant]
     Active Substance: QUETIAPINE
  9. CEVIMELINE. [Concomitant]
     Active Substance: CEVIMELINE
  10. INCRUSE ELLIPTA [Concomitant]
     Active Substance: UMECLIDINIUM BROMIDE
  11. OXYGEN. [Concomitant]
     Active Substance: OXYGEN
  12. ADVAIR HFA [Concomitant]
     Active Substance: FLUTICASONE PROPIONATE\SALMETEROL XINAFOATE
  13. CETIRIZINE [Concomitant]
     Active Substance: CETIRIZINE HYDROCHLORIDE
  14. CYCLOBENZAPRINE. [Concomitant]
     Active Substance: CYCLOBENZAPRINE
  15. FUROSEMIDE. [Concomitant]
     Active Substance: FUROSEMIDE
  16. METOLAZONE. [Concomitant]
     Active Substance: METOLAZONE
  17. METOPROLOL. [Concomitant]
     Active Substance: METOPROLOL
  18. IPRATROPIUM [Concomitant]
     Active Substance: IPRATROPIUM
  19. WARFARIN [Concomitant]
     Active Substance: WARFARIN
  20. SYNTHROID [Concomitant]
     Active Substance: LEVOTHYROXINE SODIUM
  21. LYRICA [Concomitant]
     Active Substance: PREGABALIN
  22. PILOCARPINE. [Concomitant]
     Active Substance: PILOCARPINE
  23. ZYRTEC [Concomitant]
     Active Substance: CETIRIZINE HYDROCHLORIDE
  24. LASIX + K [Concomitant]
     Active Substance: FUROSEMIDE\POTASSIUM CHLORIDE
  25. CONTOUR [ESOMEPRAZOLE MAGNESIUM] [Concomitant]
  26. SINGULAIR [Concomitant]
     Active Substance: MONTELUKAST SODIUM
  27. ARIPIPRAZOLE. [Concomitant]
     Active Substance: ARIPIPRAZOLE
  28. MAGNESIUM [Concomitant]
     Active Substance: MAGNESIUM
  29. MONTEKAST [Concomitant]
     Active Substance: MONTELUKAST SODIUM
  30. TEMAZEPAM. [Concomitant]
     Active Substance: TEMAZEPAM

REACTIONS (6)
  - Nephropathy [Recovered/Resolved]
  - Cardiac failure congestive [Recovered/Resolved]
  - Dyspnoea [Recovered/Resolved]
  - Oxygen consumption increased [Recovered/Resolved]
  - Fluid overload [Recovered/Resolved]
  - Peripheral swelling [Recovered/Resolved]

NARRATIVE: CASE EVENT DATE: 20190708
